FAERS Safety Report 6149319-7 (Version None)
Quarter: 2009Q2

REPORT INFORMATION
  Report Type: 
  Country: None (occurrence: None)
  Receive Date: 20090409
  Receipt Date: 20090402
  Transmission Date: 20091009
  Serious: Yes (Other)
  Sender: FDA-Public Use
  Company Number: US-ASTRAZENECA-2009UW08566

PATIENT
  Sex: Female

DRUGS (2)
  1. CRESTOR [Suspect]
     Dosage: 10MG
     Route: 048
  2. INSULIN [Concomitant]

REACTIONS (3)
  - CARDIAC OPERATION [None]
  - DIABETES MELLITUS [None]
  - HYPERTENSION [None]
